FAERS Safety Report 25257088 (Version 1)
Quarter: 2025Q2

REPORT INFORMATION
  Report Type: Spontaneous
  Country: GB (occurrence: GB)
  Receive Date: 20250430
  Receipt Date: 20250430
  Transmission Date: 20250716
  Serious: Yes (Hospitalization)
  Sender: PFIZER
  Company Number: GB-MHRA-MIDB-80b8850e-8c9b-4a00-82f9-280378836925

PATIENT
  Age: 51 Year
  Sex: Male

DRUGS (25)
  1. LINEZOLID [Suspect]
     Active Substance: LINEZOLID
  2. BISACODYL [Concomitant]
     Active Substance: BISACODYL
     Dosage: 1 DF, 1X/DAY (EACH MORNING)
     Dates: start: 20250114
  3. BACLOFEN [Concomitant]
     Active Substance: BACLOFEN
     Dosage: 20 MG, 3X/DAY (TWO TABLETS EVERY 8 HOURS)
  4. LANSOPRAZOLE [Concomitant]
     Active Substance: LANSOPRAZOLE
     Dosage: 1 DF, 1X/DAY (EACH MORNING)
  5. INADINE [Concomitant]
     Dates: start: 20250206
  6. PREDNISOLONE [Concomitant]
     Active Substance: PREDNISOLONE
     Dosage: 6 DF, 1X/DAY
  7. DOXYCYCLINE [Concomitant]
     Active Substance: DOXYCYCLINE
  8. OXYCODONE HYDROCHLORIDE [Concomitant]
     Active Substance: OXYCODONE HYDROCHLORIDE
     Dosage: 1 DF, 2X/DAY (EVERY 12 HOURS)
  9. ALLEVYN [Concomitant]
     Dates: start: 20250204
  10. INADINE [Concomitant]
  11. OXYCODONE [Concomitant]
     Active Substance: OXYCODONE
  12. BECLOMETHASONE DIPROPIONATE\FORMOTEROL FUMARATE [Concomitant]
     Active Substance: BECLOMETHASONE DIPROPIONATE\FORMOTEROL FUMARATE
  13. FUSIDIC ACID [Concomitant]
     Active Substance: FUSIDIC ACID
  14. OXYCODONE HYDROCHLORIDE [Concomitant]
     Active Substance: OXYCODONE HYDROCHLORIDE
  15. METOCLOPRAMIDE [Concomitant]
     Active Substance: METOCLOPRAMIDE
     Dosage: 1 DF, 2X/DAY
  16. CLONAZEPAM [Concomitant]
     Active Substance: CLONAZEPAM
     Dosage: 500 UG, 1X/DAY (AT NIGHT)
  17. AMOXICILLIN [Concomitant]
     Active Substance: AMOXICILLIN
     Dosage: 1 DF, 3X/DAY
  18. ALLEVYN [Concomitant]
     Dates: start: 20250204
  19. TAPENTADOL [Concomitant]
     Active Substance: TAPENTADOL
     Dosage: 1 DF, 2X/DAY (EVERY 12 HOURS)
  20. TAPENTADOL [Concomitant]
     Active Substance: TAPENTADOL
  21. PREGABALIN [Concomitant]
     Active Substance: PREGABALIN
     Dosage: 1 DF, 2X/DAY
  22. OXYBUTYNIN [Concomitant]
     Active Substance: OXYBUTYNIN
     Dosage: 1 DF, 3X/DAY
  23. NITRAZEPAM [Concomitant]
     Active Substance: NITRAZEPAM
  24. PROSHIELD [Concomitant]
     Dates: start: 20250204
  25. FLUCLOXACILLIN [Concomitant]
     Active Substance: FLUCLOXACILLIN
     Dosage: 1 DF, 4X/DAY

REACTIONS (1)
  - Dysaesthesia [Recovered/Resolved]
